FAERS Safety Report 10851698 (Version 1)
Quarter: 2015Q1

REPORT INFORMATION
  Report Type: Spontaneous
  Country: US (occurrence: US)
  Receive Date: 20150222
  Receipt Date: 20150222
  Transmission Date: 20150721
  Serious: No
  Sender: FDA-Public Use
  Company Number: US-ALLERGAN-1409952US

PATIENT
  Age: 50 Year
  Sex: Female

DRUGS (4)
  1. BOTOX [Suspect]
     Active Substance: ONABOTULINUMTOXINA
     Indication: HEADACHE
     Dosage: 150 UNITS, SINGLE
     Route: 030
     Dates: start: 20140501, end: 20140501
  2. TIZANIDINE (TIZANIDINE) [Concomitant]
     Active Substance: TIZANIDINE
     Indication: MUSCLE SPASMS
     Dosage: UNK
  3. TRAMADOLE [Concomitant]
     Dosage: 50 MG, QHS
     Route: 048
  4. METANX [Concomitant]
     Active Substance: LEVOMEFOLATE CALCIUM\METHYLCOBALAMIN\PYRIDOXAL PHOSPHATE ANHYDROUS
     Indication: GENE MUTATION
     Dosage: UNK
     Dates: start: 2012

REACTIONS (6)
  - Off label use [Unknown]
  - Myalgia [Unknown]
  - Asthenia [Unknown]
  - Arthritis [Unknown]
  - Musculoskeletal pain [Unknown]
  - Muscle tightness [Unknown]
